FAERS Safety Report 9209148 (Version 1)
Quarter: 2013Q1

REPORT INFORMATION
  Report Type: Spontaneous
  Country: US (occurrence: None)
  Receive Date: 20120820
  Receipt Date: 20120820
  Transmission Date: 20140127
  Serious: No
  Sender: FDA-Public Use
  Company Number: 1000031040

PATIENT
  Sex: Female

DRUGS (3)
  1. VIIBRYD (VILAZODONE) [Suspect]
  2. CIPRO [Suspect]
     Dates: start: 20120601
  3. FLAGYL [Suspect]
     Dates: start: 20120601

REACTIONS (4)
  - Paraesthesia [None]
  - Panic attack [None]
  - Unevaluable event [None]
  - Drug interaction [None]
